FAERS Safety Report 9646057 (Version 2)
Quarter: 2013Q4

REPORT INFORMATION
  Report Type: Spontaneous
  Country: IT (occurrence: IT)
  Receive Date: 20131025
  Receipt Date: 20131106
  Transmission Date: 20140711
  Serious: Yes (Hospitalization)
  Sender: FDA-Public Use
  Company Number: IT-PFIZER INC-2013305457

PATIENT
  Age: 72 Year
  Sex: Male

DRUGS (3)
  1. MEDROL [Suspect]
     Indication: RHEUMATOID ARTHRITIS
     Dosage: 12 MG, DAILY
     Dates: start: 20130601, end: 20130930
  2. ROACTEMRA [Suspect]
     Indication: RHEUMATOID ARTHRITIS
     Dosage: 8 MG/KG, MONTHLY
     Route: 042
     Dates: start: 20130827, end: 20130925
  3. REUMAFLEX [Suspect]
     Indication: RHEUMATOID ARTHRITIS
     Dosage: 10 MG, WEEKLY
     Route: 058
     Dates: start: 20130801, end: 20130930

REACTIONS (2)
  - Cerebral artery embolism [Unknown]
  - Septic embolus [Unknown]
